FAERS Safety Report 5040930-3 (Version None)
Quarter: 2006Q2

REPORT INFORMATION
  Report Type: 
  Country: None (occurrence: None)
  Receive Date: 20060601
  Receipt Date: 20060302
  Transmission Date: 20061013
  Serious: No
  Sender: FDA-Public Use
  Company Number: 2006PV009554

PATIENT
  Age: 67 Year
  Sex: Female

DRUGS (19)
  1. BYETTA [Suspect]
     Indication: DIABETES MELLITUS NON-INSULIN-DEPENDENT
     Dosage: 5 MCG;BID;SC
     Route: 058
     Dates: start: 20060227
  2. ACTOS [Concomitant]
  3. METFORMIN [Concomitant]
  4. DEMADEX [Concomitant]
  5. SYNTHROID [Concomitant]
  6. THEOPHYLLINE [Concomitant]
  7. DITROPAN [Concomitant]
  8. NEXIUM [Concomitant]
  9. NEURONTIN [Concomitant]
  10. CRESTOR [Concomitant]
  11. PAXIL CR [Concomitant]
  12. DIOVAN [Concomitant]
  13. MULTIVITAMIN [Concomitant]
  14. VITAMIN B-12 [Concomitant]
  15. CALCIUM GLUCONATE [Concomitant]
  16. GARLIC OIL [Concomitant]
  17. AZMACORT [Concomitant]
  18. ALBUTEROL SPIROS [Concomitant]
  19. VITAMIN C WITH ROSE HIP [Concomitant]

REACTIONS (1)
  - DRY MOUTH [None]
